FAERS Safety Report 10017263 (Version 1)
Quarter: 2014Q1

REPORT INFORMATION
  Report Type: Spontaneous
  Country: US (occurrence: None)
  Receive Date: 20140313
  Receipt Date: 20140313
  Transmission Date: 20141002
  Serious: Yes (Other)
  Sender: FDA-Public Use
  Company Number: None

PATIENT
  Age: 74 Year
  Sex: Female
  Weight: 69.4 kg

DRUGS (1)
  1. PRAVASTATIN [Suspect]
     Indication: BLOOD CHOLESTEROL INCREASED
     Route: 048
     Dates: start: 20130710, end: 20130724

REACTIONS (4)
  - Myalgia [None]
  - Arthralgia [None]
  - Arthralgia [None]
  - Pain in extremity [None]
